FAERS Safety Report 14406626 (Version 4)
Quarter: 2018Q3

REPORT INFORMATION
  Report Type: Spontaneous
  Country: PL (occurrence: PL)
  Receive Date: 20180118
  Receipt Date: 20180802
  Transmission Date: 20181010
  Serious: Yes (Other)
  Sender: FDA-Public Use
  Company Number: PHHY2017PL167424

PATIENT
  Age: 61 Year
  Sex: Male

DRUGS (6)
  1. OXYCODONE [Suspect]
     Active Substance: OXYCODONE
     Indication: PERIPHERAL SENSORY NEUROPATHY
     Dosage: 10 MG, BID
     Route: 065
  2. AMITRIPTYLINE [Suspect]
     Active Substance: AMITRIPTYLINE
     Indication: PERIPHERAL SENSORY NEUROPATHY
     Dosage: 25 MG, QD
     Route: 065
  3. PREGABALIN. [Suspect]
     Active Substance: PREGABALIN
     Indication: PERIPHERAL SENSORY NEUROPATHY
     Dosage: 75 MG, BID
     Route: 065
  4. TAPENTADOL [Suspect]
     Active Substance: TAPENTADOL
     Indication: PERIPHERAL SENSORY NEUROPATHY
     Dosage: 2 X 50MG (PROLONGED RELEASE); DOSE LATER INCREASED TO 50MG IN THE MORNING AND 100MG IN THE EVENING
     Route: 065
  5. AMITRIPTYLINE [Suspect]
     Active Substance: AMITRIPTYLINE
     Indication: DEPRESSION
  6. OXALIPLATIN. [Suspect]
     Active Substance: OXALIPLATIN
     Indication: ADENOCARCINOMA OF COLON
     Dosage: 10 CYCLES
     Route: 065

REACTIONS (17)
  - Asthenia [Unknown]
  - Vomiting [Unknown]
  - Burning sensation [Recovering/Resolving]
  - Pain in extremity [Recovering/Resolving]
  - Fatigue [Unknown]
  - Hypoaesthesia [Recovering/Resolving]
  - Quality of life decreased [Recovered/Resolved]
  - Peripheral sensory neuropathy [Recovering/Resolving]
  - Allodynia [Recovering/Resolving]
  - Dysaesthesia [Recovering/Resolving]
  - Nausea [Unknown]
  - Palpitations [Unknown]
  - Hyperaesthesia [Recovering/Resolving]
  - Disturbance in attention [Unknown]
  - Sedation complication [Unknown]
  - Balance disorder [Unknown]
  - Constipation [Unknown]
